FAERS Safety Report 23645373 (Version 1)
Quarter: 2024Q1

REPORT INFORMATION
  Report Type: Spontaneous
  Country: US (occurrence: US)
  Receive Date: 20240318
  Receipt Date: 20240318
  Transmission Date: 20240409
  Serious: No
  Sender: FDA-Public Use
  Company Number: US-002147023-NVSC2024US057393

PATIENT

DRUGS (1)
  1. LEQVIO [Suspect]
     Active Substance: INCLISIRAN SODIUM
     Indication: Low density lipoprotein increased
     Dosage: 284 MG, DAY 1, DAY 90, THEN EVERY 6 MONTHS THEREAFTER
     Route: 058

REACTIONS (1)
  - Drug effect less than expected [Not Recovered/Not Resolved]
